FAERS Safety Report 11237654 (Version 2)
Quarter: 2016Q1

REPORT INFORMATION
  Report Type: Report from Study
  Country: DE (occurrence: DE)
  Receive Date: 20150703
  Receipt Date: 20160201
  Transmission Date: 20160525
  Serious: Yes (Death, Hospitalization)
  Sender: FDA-Public Use
  Company Number: DE-ROCHE-ITM201505IM015993

PATIENT
  Age: 59 Year
  Sex: Male

DRUGS (1)
  1. ESBRIET [Suspect]
     Active Substance: PIRFENIDONE
     Indication: IDIOPATHIC PULMONARY FIBROSIS
     Route: 048
     Dates: start: 20150331, end: 20150617

REACTIONS (2)
  - Dyspnoea [Unknown]
  - General physical health deterioration [Fatal]

NARRATIVE: CASE EVENT DATE: 201505
